FAERS Safety Report 4644892-X (Version None)
Quarter: 2005Q2

REPORT INFORMATION
  Report Type: 
  Country: None (occurrence: None)
  Receive Date: 20050426
  Receipt Date: 20050421
  Transmission Date: 20051028
  Serious: Yes (Other)
  Sender: FDA-Public Use
  Company Number: PHBS2005CN05662

PATIENT
  Sex: Female

DRUGS (1)
  1. VOLTAMICIN (NVO) [Suspect]
     Indication: IRITIS
     Dates: start: 20050419

REACTIONS (1)
  - BLINDNESS [None]
